FAERS Safety Report 9713381 (Version 1)
Quarter: 2013Q4

REPORT INFORMATION
  Report Type: Spontaneous
  Country: US (occurrence: None)
  Receive Date: 20131125
  Receipt Date: 20131125
  Transmission Date: 20140711
  Serious: No
  Sender: FDA-Public Use
  Company Number: None

PATIENT
  Age: 35 Year
  Sex: Female
  Weight: 99.79 kg

DRUGS (13)
  1. SUCCINYLCHOLINE [Suspect]
     Indication: SURGERY
     Route: 042
     Dates: start: 20131031, end: 20131031
  2. ULTANE [Concomitant]
  3. PROPOFOL [Concomitant]
  4. ROCURONIUM [Concomitant]
  5. FENTANYL [Concomitant]
  6. MIDAZOLAM [Concomitant]
  7. LIDOCAINE [Concomitant]
  8. CEFAZOLIN [Concomitant]
  9. LACTATED RINGERS SOLUTION [Concomitant]
  10. ONDANSETRON [Concomitant]
  11. DEXAMTHASON [Concomitant]
  12. ALBUTEROL [Concomitant]
  13. HYDROMORPHONE [Concomitant]

REACTIONS (3)
  - Neck pain [None]
  - Musculoskeletal pain [None]
  - Pain in extremity [None]
